FAERS Safety Report 4879723-6 (Version None)
Quarter: 2006Q1

REPORT INFORMATION
  Report Type: 
  Country: None (occurrence: None)
  Receive Date: 20060113
  Receipt Date: 20060109
  Transmission Date: 20060701
  Serious: Yes (Life-Threatening, Hospitalization)
  Sender: FDA-Public Use
  Company Number: PHEH2006US00685

PATIENT
  Age: 86 Year
  Sex: Female
  Weight: 52 kg

DRUGS (5)
  1. AMLODIPINE [Concomitant]
     Dosage: 5 MG, QD
     Route: 048
  2. PREMARIN [Concomitant]
     Dosage: 0.625 MG, QD
     Route: 048
  3. ZELNORM [Suspect]
     Indication: CONSTIPATION
     Dosage: 6 MG, BID
     Route: 048
     Dates: start: 20051201, end: 20051201
  4. CENTRUM SILVER [Concomitant]
  5. VITAMIN E [Concomitant]
     Dosage: 400 IU, QD
     Route: 048

REACTIONS (8)
  - ASTHENIA [None]
  - ATRIAL FIBRILLATION [None]
  - BLOOD CREATINE PHOSPHOKINASE MB INCREASED [None]
  - BRAIN NATRIURETIC PEPTIDE INCREASED [None]
  - CARDIAC ENZYMES INCREASED [None]
  - DYSPNOEA [None]
  - PULMONARY OEDEMA [None]
  - WHEEZING [None]
